FAERS Safety Report 9670269 (Version 2)
Quarter: 2013Q4

REPORT INFORMATION
  Report Type: Spontaneous
  Country: FR (occurrence: FR)
  Receive Date: 20131105
  Receipt Date: 20131111
  Transmission Date: 20140711
  Serious: Yes (Hospitalization)
  Sender: FDA-Public Use
  Company Number: FR-TEVA-440544ISR

PATIENT
  Age: 57 Year
  Sex: Female

DRUGS (13)
  1. CARBOPLATINE TEVA 10MG/ML [Suspect]
     Indication: CERVIX CARCINOMA
     Route: 041
     Dates: start: 20130823, end: 20130906
  2. PACLITAXEL [Concomitant]
  3. AZANTAC [Concomitant]
  4. POLARAMINE [Concomitant]
  5. PRIMPERAN [Concomitant]
  6. ZOPHREN [Concomitant]
  7. SOLUMEDROL [Concomitant]
  8. FRAGMINE [Concomitant]
  9. INEXIUM [Concomitant]
  10. DAFALGAN [Concomitant]
  11. OXYCONTIN [Concomitant]
  12. OXYNORM [Concomitant]
  13. STILNOX [Concomitant]

REACTIONS (6)
  - Generalised erythema [Recovered/Resolved]
  - Hypotension [Recovered/Resolved]
  - Oxygen saturation decreased [Recovered/Resolved]
  - Hyperhidrosis [Recovered/Resolved]
  - Tremor [Recovered/Resolved]
  - Abdominal pain [Recovered/Resolved]
